FAERS Safety Report 9310354 (Version 1)
Quarter: 2013Q2

REPORT INFORMATION
  Report Type: Spontaneous
  Country: US (occurrence: US)
  Receive Date: 20130527
  Receipt Date: 20130527
  Transmission Date: 20140414
  Serious: Yes (Life-Threatening, Hospitalization, Disabling, Other)
  Sender: FDA-Public Use
  Company Number: US-PFIZER INC-2010008001

PATIENT
  Age: 5 Year
  Sex: Male

DRUGS (25)
  1. CEFAZOLIN [Suspect]
     Indication: PHARYNGITIS STREPTOCOCCAL
     Dosage: 300 MG, 3X/DAY
     Route: 042
     Dates: start: 20030705
  2. CHILDREN^S MOTRIN [Suspect]
     Indication: PYREXIA
     Dosage: 100 MG, UNK
     Dates: start: 19991221
  3. CHILDREN^S MOTRIN [Suspect]
     Dosage: UNK
     Route: 065
     Dates: start: 20011106
  4. CHILDREN^S MOTRIN [Suspect]
     Dosage: 150 MG, 1 IN 1 AS NECESSARY
     Route: 065
     Dates: start: 20030703
  5. CHILDREN^S MOTRIN [Suspect]
     Dosage: 185 MG, 1 IN 6 HOUR
     Dates: start: 20030707
  6. CEFZIL [Suspect]
     Indication: PHARYNGITIS STREPTOCOCCAL
     Dosage: UNK MG, 2X/DAY
     Route: 048
     Dates: start: 200111
  7. CEFZIL [Suspect]
     Dosage: UNK
     Route: 048
     Dates: start: 200202
  8. CEFZIL [Suspect]
     Dosage: UNK
     Route: 048
     Dates: start: 200303
  9. CEFZIL [Suspect]
     Dosage: 250 MG, 2X/DAY
     Route: 048
     Dates: start: 20030704
  10. CEFUROXIME AXETIL [Suspect]
     Indication: PHARYNGITIS STREPTOCOCCAL
     Dosage: 60 MG, 1 IN 8 HOUR
     Route: 042
     Dates: start: 20030705
  11. CEFUROXIME AXETIL [Suspect]
     Dosage: 600 MG, 1 IN 8 HOUR
     Route: 042
     Dates: start: 20030706
  12. CEFOXITIN [Suspect]
     Indication: PHARYNGITIS STREPTOCOCCAL
     Dosage: 600 MG, 1 IN 8 HOUR
     Route: 042
     Dates: start: 20030706
  13. KCL [Concomitant]
     Indication: MINERAL SUPPLEMENTATION
     Dosage: 30 MEQ, 3X/DAY
     Route: 065
     Dates: start: 200307
  14. HYDROCORTISONE [Concomitant]
     Indication: ECZEMA
     Dosage: UNK, AS NECESSARY
     Route: 061
     Dates: start: 200307
  15. TYLENOL [Concomitant]
     Indication: PYREXIA
     Dosage: UNK, AS NECESSARY
     Route: 065
     Dates: start: 200307
  16. FLUCONAZOLE [Concomitant]
     Indication: FUNGAEMIA
     Dosage: 130 MG, 1X/DAY
     Route: 065
     Dates: start: 200307
  17. FLUCONAZOLE [Concomitant]
     Dosage: 200 MG, 1X/DAY
     Route: 065
     Dates: start: 200307
  18. ATIVAN [Concomitant]
     Indication: ANXIETY
     Dosage: 1 MG, EVERY 4 HRS
     Dates: start: 200307
  19. ATIVAN [Concomitant]
     Indication: PAIN
  20. LANSOPRAZOLE [Concomitant]
     Dosage: 15 MG, UNK ENTERAL
  21. ALDACTONE [Concomitant]
     Dosage: 6 MG, 2X/DAY
  22. FUROSEMIDE [Concomitant]
     Dosage: 0.25 MG/KG/HR, UNK
     Route: 042
  23. FENTANYL [Concomitant]
     Indication: PAIN
     Dosage: 50 MCH/HR CONTINUOUS VIA J-TUBE/BOLUS 25-50 MECG IV Q 1 HOUR PRN
     Route: 042
     Dates: start: 200307
  24. CIPROFLOXACIN [Concomitant]
     Indication: INFECTION
     Dosage: 1 DOSE(S), 1 IN 8 HOUR
     Route: 047
  25. LACRI-LUBE [Concomitant]
     Indication: PROPHYLAXIS
     Dosage: 0.25 DOSE(S), 1 IN 2 HOUR
     Route: 065
     Dates: start: 200307

REACTIONS (3)
  - Toxic epidermal necrolysis [Recovered/Resolved]
  - Cardiomyopathy [Recovered/Resolved]
  - Pericardial effusion [Recovered/Resolved]
